FAERS Safety Report 10153044 (Version 1)
Quarter: 2014Q2

REPORT INFORMATION
  Report Type: Other
  Country: GB (occurrence: GB)
  Receive Date: 20140505
  Receipt Date: 20140505
  Transmission Date: 20141212
  Serious: Yes (Hospitalization, Disabling, Other)
  Sender: FDA-Public Use
  Company Number: GB-PERRIGO-14GB004607

PATIENT
  Age: 60 Year
  Sex: Male
  Weight: 101.6 kg

DRUGS (3)
  1. NAPROXEN 250MG 16028/0144 [Suspect]
     Indication: MUSCULOSKELETAL PAIN
     Dosage: 500 MG, BID
     Route: 048
     Dates: start: 201403
  2. NAPROXEN 250MG 16028/0144 [Suspect]
     Indication: LIMB DISCOMFORT
     Dosage: UNK
     Route: 048
     Dates: start: 2013
  3. CO-CODAMOL [Concomitant]
     Indication: PRODUCT USED FOR UNKNOWN INDICATION
     Dosage: UNK
     Route: 065

REACTIONS (4)
  - Gastrointestinal haemorrhage [Unknown]
  - Gastrointestinal ulcer [Unknown]
  - Presyncope [Unknown]
  - Drug ineffective [Unknown]
